FAERS Safety Report 19847688 (Version 1)
Quarter: 2021Q3

REPORT INFORMATION
  Report Type: Report from Study
  Country: FR (occurrence: FR)
  Receive Date: 20210917
  Receipt Date: 20210917
  Transmission Date: 20211014
  Serious: Yes (Hospitalization)
  Sender: FDA-Public Use
  Company Number: FR-SERVIER-S21010112

PATIENT

DRUGS (6)
  1. TN UNSPECIFIED [VINCRISTINE SULFATE] [Concomitant]
     Active Substance: VINCRISTINE SULFATE
     Indication: ACUTE LYMPHOCYTIC LEUKAEMIA
     Dosage: 1 MG, D1, D8, D29, D36, D57 AND D64
     Route: 042
     Dates: start: 20200125
  2. TN UNSPECIFIED [METHOTREXATE SODIUM] [Suspect]
     Active Substance: METHOTREXATE SODIUM
     Indication: ACUTE LYMPHOCYTIC LEUKAEMIA
     Dosage: 10 MG, D2
     Route: 037
     Dates: start: 20200127
  3. TN UNSPECIFIED [DEXAMETHASONE] [Concomitant]
     Active Substance: DEXAMETHASONE
     Indication: ACUTE LYMPHOCYTIC LEUKAEMIA
     Dosage: 4 MG, D1 TO D5
     Route: 048
     Dates: start: 20200125
  4. TN UNSPECIFIED [METHOTREXATE SODIUM] [Suspect]
     Active Substance: METHOTREXATE SODIUM
     Dosage: 17.5, D8 AND D15
     Route: 048
     Dates: start: 20200131
  5. TN UNSPECIFIED [MERCAPTOPURINE] [Concomitant]
     Active Substance: MERCAPTOPURINE
     Indication: ACUTE LYMPHOCYTIC LEUKAEMIA
     Dosage: 35 MG, D1 TO D29
     Route: 048
     Dates: start: 20200125
  6. PEGASPARGASE [Suspect]
     Active Substance: PEGASPARGASE
     Indication: ACUTE LYMPHOCYTIC LEUKAEMIA
     Dosage: 860 IU, D8
     Route: 042
     Dates: start: 20200131

REACTIONS (1)
  - Herpes zoster [Recovered/Resolved]

NARRATIVE: CASE EVENT DATE: 20200203
